FAERS Safety Report 15627272 (Version 3)
Quarter: 2018Q4

REPORT INFORMATION
  Report Type: Spontaneous
  Country: SE (occurrence: SE)
  Receive Date: 20181116
  Receipt Date: 20181219
  Transmission Date: 20190205
  Serious: Yes (Hospitalization)
  Sender: FDA-Public Use
  Company Number: SE-PFIZER INC-2011SE67957

PATIENT
  Age: 22 Year
  Sex: Female

DRUGS (4)
  1. POSTAFEN [MECLOZINE HYDROCHLORIDE] [Concomitant]
     Dosage: UNK
     Route: 048
  2. FURADANTIN [Concomitant]
     Active Substance: NITROFURANTOIN
     Dosage: UNK
     Route: 048
  3. MERONEM [Suspect]
     Active Substance: MEROPENEM
     Indication: BACTERIAL PYELONEPHRITIS
     Dosage: 500 MG, (ONCE/SINGLE ADMINISTRATION)
     Route: 042
     Dates: start: 20111025, end: 20111025
  4. LERGIGAN [PROMETHAZINE HYDROCHLORIDE] [Concomitant]
     Dosage: UNK
     Route: 048

REACTIONS (5)
  - Angioedema [Recovered/Resolved]
  - Syncope [Recovered/Resolved]
  - Chest pain [Recovered/Resolved]
  - Dyspnoea [Recovered/Resolved]
  - Nausea [Recovered/Resolved]

NARRATIVE: CASE EVENT DATE: 20111025
